FAERS Safety Report 4357345-3 (Version None)
Quarter: 2004Q2

REPORT INFORMATION
  Report Type: 
  Country: None (occurrence: None)
  Receive Date: 20040507
  Receipt Date: 20040326
  Transmission Date: 20050107
  Serious: Yes (Other)
  Sender: FDA-Public Use
  Company Number: 6008157

PATIENT
  Sex: Female

DRUGS (3)
  1. CONCOR (BISOPROLOL FUMARATE) [Suspect]
     Indication: ARRHYTHMIA
  2. SORTIS (ATORVASTATIN CALCIUM) [Concomitant]
  3. BLOPRESS (CANDESARTAN CILEXETIL) [Concomitant]

REACTIONS (1)
  - HEPATITIS [None]
